FAERS Safety Report 18825590 (Version 1)
Quarter: 2021Q1

REPORT INFORMATION
  Report Type: Report from Study
  Country: CA (occurrence: CA)
  Receive Date: 20210202
  Receipt Date: 20210202
  Transmission Date: 20210419
  Serious: Yes (Other)
  Sender: FDA-Public Use
  Company Number: CA-PFIZER INC-2021079787

PATIENT
  Sex: Female

DRUGS (6)
  1. BETADERM [Concomitant]
     Active Substance: BETAMETHASONE VALERATE
     Route: 065
  2. BETAMETHASONE DIPROPIONATE/CALCIPOTRIOL [Concomitant]
     Active Substance: BETAMETHASONE DIPROPIONATE\CALCIPOTRIENE
     Route: 065
  3. CLOBETASOL [Suspect]
     Active Substance: CLOBETASOL
     Route: 065
  4. ACITRETIN. [Suspect]
     Active Substance: ACITRETIN
     Route: 065
  5. SULFASALAZINE. [Concomitant]
     Active Substance: SULFASALAZINE
     Route: 065
  6. METHOTREXATE SODIUM. [Suspect]
     Active Substance: METHOTREXATE SODIUM
     Indication: PSORIASIS
     Route: 065

REACTIONS (4)
  - Liver function test increased [Unknown]
  - Psoriatic arthropathy [Unknown]
  - Contraindicated product administered [Unknown]
  - Treatment failure [Unknown]
